FAERS Safety Report 17180359 (Version 1)
Quarter: 2019Q4

REPORT INFORMATION
  Report Type: Spontaneous
  Country: US (occurrence: US)
  Receive Date: 20191219
  Receipt Date: 20191219
  Transmission Date: 20200122
  Serious: No
  Sender: FDA-Public Use
  Company Number: US-UCBSA-110591

PATIENT
  Age: 69 Year
  Sex: Female
  Weight: 61.23 kg

DRUGS (6)
  1. FLEX [Concomitant]
  2. ARAVA [Concomitant]
     Active Substance: LEFLUNOMIDE
     Indication: RHEUMATOID ARTHRITIS
     Dosage: 20 MG, ONCE DAILY (QD)
     Dates: start: 201402
  3. ENBREL [Concomitant]
     Active Substance: ETANERCEPT
  4. CIMZIA [Suspect]
     Active Substance: CERTOLIZUMAB PEGOL
     Indication: RHEUMATOID ARTHRITIS
     Dosage: ON HOLD
     Dates: start: 20130513, end: 201306
  5. PENICILLIN [Concomitant]
     Active Substance: PENICILLIN
  6. HUMIRA [Concomitant]
     Active Substance: ADALIMUMAB

REACTIONS (2)
  - Paronychia [Recovered/Resolved]
  - Malaise [Not Recovered/Not Resolved]

NARRATIVE: CASE EVENT DATE: 20131002
